FAERS Safety Report 19673452 (Version 1)
Quarter: 2021Q3

REPORT INFORMATION
  Report Type: Spontaneous
  Country: US (occurrence: US)
  Receive Date: 20210806
  Receipt Date: 20210806
  Transmission Date: 20211014
  Serious: Yes (Death)
  Sender: FDA-Public Use
  Company Number: None

PATIENT
  Age: 76 Year
  Sex: Female
  Weight: 74 kg

DRUGS (14)
  1. DIINDOLYLMETHANE [Concomitant]
     Active Substance: 3,3^-DIINDOLYLMETHANE
  2. BLACK CUMIN POWDER [Concomitant]
  3. ASHWAGANDHA 500MG [Concomitant]
  4. VITAMIN D 125MCG [Concomitant]
  5. CAPECITABINE. [Suspect]
     Active Substance: CAPECITABINE
     Indication: SKIN CANCER
     Dosage: ?          OTHER FREQUENCY:BID X 14/21 DAYS;?
     Route: 048
     Dates: start: 20210514, end: 20210717
  6. PSYLLIUM HUSK. [Concomitant]
     Active Substance: PSYLLIUM HUSK
  7. VITAMIN B6 100MG [Concomitant]
  8. FLAX SEEDS [Concomitant]
     Active Substance: FLAX SEEDS
  9. AMALKI [Concomitant]
  10. BLOD ROOT POWDER [Concomitant]
  11. FEMARA [Concomitant]
     Active Substance: LETROZOLE
  12. BLACK SALVE [Concomitant]
     Active Substance: HERBALS\ZINC CHLORIDE
  13. APPLE CIDER VINEGAR [Concomitant]
     Active Substance: APPLE CIDER VINEGAR
  14. TRITHALA POWDER [Concomitant]

REACTIONS (1)
  - Death [None]

NARRATIVE: CASE EVENT DATE: 20210717
